FAERS Safety Report 8741033 (Version 2)
Quarter: 2012Q4

REPORT INFORMATION
  Report Type: 
  Country: US (occurrence: US)
  Receive Date: 20120824
  Receipt Date: 20121002
  Transmission Date: 20130627
  Serious: No
  Sender: FDA-Public Use
  Company Number: US-ASTRAZENECA-2011SE69518

PATIENT
  Age: 59 Year
  Sex: Female

DRUGS (3)
  1. SYMBICORT PMDI [Suspect]
     Route: 055
  2. VIMOVO [Suspect]
     Route: 048
  3. PRILOSEC OTC [Suspect]
     Route: 048

REACTIONS (8)
  - Fibromyalgia [Unknown]
  - Bone pain [Unknown]
  - Rotator cuff syndrome [Unknown]
  - Regurgitation [Unknown]
  - Abdominal discomfort [Unknown]
  - Osteogenesis imperfecta [Unknown]
  - Irritable bowel syndrome [Unknown]
  - Drug dose omission [Unknown]
